FAERS Safety Report 10738141 (Version 1)
Quarter: 2015Q1

REPORT INFORMATION
  Report Type: Spontaneous
  Country: US (occurrence: None)
  Receive Date: 20150122
  Receipt Date: 20150122
  Transmission Date: 20150721
  Serious: Yes (Hospitalization, Disabling)
  Sender: FDA-Public Use
  Company Number: None

PATIENT
  Age: 35 Year
  Sex: Female

DRUGS (1)
  1. NECON [Suspect]
     Active Substance: ETHINYL ESTRADIOL\NORETHINDRONE
     Indication: MENSTRUATION IRREGULAR
     Dosage: 1/35 1 PILL
     Route: 048
     Dates: start: 20040501, end: 20140222

REACTIONS (5)
  - Foot fracture [None]
  - Hand fracture [None]
  - Osteoporosis [None]
  - Lower limb fracture [None]
  - Hip fracture [None]
